FAERS Safety Report 14146428 (Version 2)
Quarter: 2017Q4

REPORT INFORMATION
  Report Type: Spontaneous
  Country: GB (occurrence: GB)
  Receive Date: 20171031
  Receipt Date: 20171102
  Transmission Date: 20180321
  Serious: Yes (Disabling, Congenital Anomaly, Other)
  Sender: FDA-Public Use
  Company Number: GB-ABBVIE-17P-167-2146024-00

PATIENT

DRUGS (1)
  1. EPILIM [Suspect]
     Active Substance: VALPROATE SODIUM
     Indication: MATERNAL EXPOSURE TIMING UNSPECIFIED
     Route: 064

REACTIONS (10)
  - Agitation neonatal [Unknown]
  - Congenital floppy infant [Unknown]
  - Ear malformation [Unknown]
  - Beta haemolytic streptococcal infection [Recovered/Resolved]
  - Congenital cardiovascular anomaly [Unknown]
  - Low birth weight baby [Unknown]
  - Foetal exposure during pregnancy [Unknown]
  - Poor feeding infant [Unknown]
  - Congenital flat feet [Unknown]
  - Tooth development disorder [Unknown]

NARRATIVE: CASE EVENT DATE: 1999
